FAERS Safety Report 10009764 (Version 1)
Quarter: 2014Q1

REPORT INFORMATION
  Report Type: Spontaneous
  Country: US (occurrence: US)
  Receive Date: 20140312
  Receipt Date: 20140312
  Transmission Date: 20141002
  Serious: No
  Sender: FDA-Public Use
  Company Number: US-INCYTE CORPORATION-2012IN002631

PATIENT
  Sex: 0

DRUGS (2)
  1. JAKAFI [Suspect]
     Indication: MYELOFIBROSIS
     Dosage: 5 MG, BID
     Route: 048
     Dates: start: 20120806
  2. JAKAFI [Suspect]
     Dosage: 5 MG, QD
     Route: 048
     Dates: start: 2012

REACTIONS (1)
  - Blood count abnormal [Unknown]
